FAERS Safety Report 13410939 (Version 2)
Quarter: 2017Q2

REPORT INFORMATION
  Report Type: Spontaneous
  Country: US (occurrence: US)
  Receive Date: 20170406
  Receipt Date: 20170607
  Transmission Date: 20170830
  Serious: No
  Sender: FDA-Public Use
  Company Number: US-JNJFOC-20170222589

PATIENT
  Age: 47 Year
  Sex: Male
  Weight: 81.65 kg

DRUGS (2)
  1. RISPERDAL CONSTA [Suspect]
     Active Substance: RISPERIDONE
     Indication: SCHIZOPHRENIA
     Route: 030
     Dates: start: 2011, end: 2014
  2. RISPERDAL CONSTA [Suspect]
     Active Substance: RISPERIDONE
     Indication: SCHIZOPHRENIA
     Route: 030
     Dates: start: 20140712

REACTIONS (5)
  - Poor quality sleep [Unknown]
  - Drug dose omission [Unknown]
  - Hallucination [Not Recovered/Not Resolved]
  - Device leakage [Unknown]
  - Soliloquy [Unknown]

NARRATIVE: CASE EVENT DATE: 2011
